FAERS Safety Report 5418873-2 (Version None)
Quarter: 2007Q3

REPORT INFORMATION
  Report Type: 
  Country: None (occurrence: None)
  Receive Date: 20070718
  Receipt Date: 20060720
  Transmission Date: 20080115
  Serious: Yes (Hospitalization)
  Sender: FDA-Public Use
  Company Number: 2006091502

PATIENT
  Sex: Female
  Weight: 68.0396 kg

DRUGS (1)
  1. CELEBREX [Suspect]
     Indication: DRUG USE FOR UNKNOWN INDICATION
     Dosage: 800 MG (200 MG, 4 IN 1 D)
     Dates: start: 19980101

REACTIONS (2)
  - CEREBROVASCULAR ACCIDENT [None]
  - MUSCULOSKELETAL PAIN [None]
